FAERS Safety Report 6142349-0 (Version None)
Quarter: 2009Q2

REPORT INFORMATION
  Report Type: 
  Country: None (occurrence: None)
  Receive Date: 20090403
  Receipt Date: 20090401
  Transmission Date: 20091009
  Serious: Yes (Life-Threatening)
  Sender: FDA-Public Use
  Company Number: IT-JNJFOC-20090205958

PATIENT
  Sex: Male

DRUGS (3)
  1. SERENASE [Suspect]
     Indication: AGITATION
     Route: 048
  2. GLIBEN [Suspect]
     Indication: DIABETES MELLITUS
     Route: 048
  3. LERCADIP [Concomitant]
     Indication: HYPERTENSION
     Route: 048

REACTIONS (2)
  - ASTHENIA [None]
  - SOPOR [None]
